FAERS Safety Report 10953377 (Version 2)
Quarter: 2015Q2

REPORT INFORMATION
  Report Type: Spontaneous
  Country: JP (occurrence: JP)
  Receive Date: 20150325
  Receipt Date: 20150416
  Transmission Date: 20150821
  Serious: Yes (Hospitalization, Disabling)
  Sender: FDA-Public Use
  Company Number: JP-SA-2015SA035918

PATIENT
  Age: 94 Year
  Sex: Female

DRUGS (2)
  1. AMARYL [Suspect]
     Active Substance: GLIMEPIRIDE
     Indication: TYPE 2 DIABETES MELLITUS
     Route: 048
     Dates: end: 20140807
  2. LINAGLIPTIN [Interacting]
     Active Substance: LINAGLIPTIN
     Indication: TYPE 2 DIABETES MELLITUS
     Route: 048

REACTIONS (7)
  - Heart rate decreased [Unknown]
  - Blood pressure increased [Unknown]
  - Hypoglycaemia [Recovered/Resolved]
  - Hypoglycaemic encephalopathy [Not Recovered/Not Resolved]
  - Aphasia [Unknown]
  - Depressed level of consciousness [Recovering/Resolving]
  - Drug interaction [Unknown]

NARRATIVE: CASE EVENT DATE: 20140807
